FAERS Safety Report 14362626 (Version 2)
Quarter: 2018Q3

REPORT INFORMATION
  Report Type: Spontaneous
  Country: DE (occurrence: DE)
  Receive Date: 20180108
  Receipt Date: 20180725
  Transmission Date: 20181010
  Serious: Yes (Hospitalization, Disabling, Other)
  Sender: FDA-Public Use
  Company Number: DE-SA-2017SA242195

PATIENT
  Age: 56 Year
  Sex: Female
  Weight: 121 kg

DRUGS (15)
  1. TAVOR [SIMVASTATIN] [Concomitant]
     Active Substance: SIMVASTATIN
     Dosage: .5 MG,PRN
     Route: 065
  2. PRALUENT [Suspect]
     Active Substance: ALIROCUMAB
     Indication: LOW DENSITY LIPOPROTEIN INCREASED
     Dosage: 75 MG,UNK
     Route: 058
     Dates: start: 20160927, end: 20171112
  3. SPIRONOLACTONE. [Concomitant]
     Active Substance: SPIRONOLACTONE
     Dosage: .5 DF,UNK
     Route: 065
  4. CANDESARTAN CILEXETIL. [Concomitant]
     Active Substance: CANDESARTAN CILEXETIL
     Dosage: 4 MG,UNK
     Route: 065
  5. DECORTIN H [Concomitant]
     Active Substance: PREDNISOLONE
     Dosage: 1 DF, QD
  6. ALLOPURINOL. [Concomitant]
     Active Substance: ALLOPURINOL
     Dosage: 1 DF,UNK
     Route: 065
  7. LEVOTHYROXINE SODIUM. [Concomitant]
     Active Substance: LEVOTHYROXINE SODIUM
     Dosage: 1 DF,UNK
     Route: 065
  8. JANUVIA [Concomitant]
     Active Substance: SITAGLIPTIN PHOSPHATE
     Dosage: 1 DF,UNK
     Route: 065
  9. TORASEMIDE [Concomitant]
     Active Substance: TORSEMIDE
     Dosage: .5 DF,UNK
     Route: 065
  10. MAGNESIUM [Concomitant]
     Active Substance: MAGNESIUM
     Dosage: 3 DF,QD
     Route: 065
  11. SINTROM [Concomitant]
     Active Substance: ACENOCOUMAROL
     Dosage: 4 MG,UNK
     Route: 065
  12. XIPAMIDE [Concomitant]
     Active Substance: XIPAMIDE
     Dosage: 10 MG,UNK
     Route: 065
  13. ATORVASTATIN [Concomitant]
     Active Substance: ATORVASTATIN
     Dosage: 1 DF,UNK
  14. GLYCEROL [Concomitant]
     Active Substance: GLYCERIN
     Dosage: UNK UNK,PRN
     Route: 065
  15. METOPROLOL SUCCINATE. [Concomitant]
     Active Substance: METOPROLOL SUCCINATE
     Dosage: 1 DF,UNK
     Route: 065

REACTIONS (31)
  - Serum sickness [Unknown]
  - Neutrophil count increased [Unknown]
  - Inflammation [Unknown]
  - Myalgia [Unknown]
  - Productive cough [Unknown]
  - Headache [Recovered/Resolved]
  - Night sweats [Unknown]
  - Mitral valve incompetence [Unknown]
  - Mobility decreased [Unknown]
  - Arthralgia [Unknown]
  - Fatigue [Unknown]
  - Peripheral swelling [Unknown]
  - Erythema [Unknown]
  - Pain in extremity [Unknown]
  - Gamma-glutamyltransferase increased [Unknown]
  - Vertigo [Unknown]
  - Pyrexia [Unknown]
  - Chest pain [Unknown]
  - Mitral valve stenosis [Unknown]
  - Condition aggravated [Unknown]
  - Gait disturbance [Unknown]
  - Weight decreased [Unknown]
  - Dyspnoea [Unknown]
  - C-reactive protein increased [Unknown]
  - Mitral valve sclerosis [Unknown]
  - General physical health deterioration [Unknown]
  - Asthenia [Unknown]
  - Chills [Unknown]
  - Pleural effusion [Unknown]
  - Pain [Unknown]
  - Aspartate aminotransferase increased [Unknown]

NARRATIVE: CASE EVENT DATE: 20171113
